FAERS Safety Report 15033511 (Version 2)
Quarter: 2018Q4

REPORT INFORMATION
  Report Type: Report from Study
  Country: US (occurrence: US)
  Receive Date: 20180619
  Receipt Date: 20181011
  Transmission Date: 20190204
  Serious: No
  Sender: FDA-Public Use
  Company Number: US-MALLINCKRODT-T201802572

PATIENT
  Sex: Male
  Weight: 104 kg

DRUGS (1)
  1. REPOSITORY CORTICOTROPIN INJECTION [Suspect]
     Active Substance: CORTICOTROPIN
     Indication: FOCAL SEGMENTAL GLOMERULOSCLEROSIS
     Dosage: 80 UNITS, 2 TIMES A WEEK
     Route: 058
     Dates: start: 20141201, end: 20161201

REACTIONS (1)
  - Drug effect incomplete [Unknown]
